FAERS Safety Report 6657294-1 (Version None)
Quarter: 2010Q1

REPORT INFORMATION
  Report Type: 
  Country: None (occurrence: None)
  Receive Date: 20100330
  Receipt Date: 20100329
  Transmission Date: 20100710
  Serious: Yes (Hospitalization)
  Sender: FDA-Public Use
  Company Number: IT-SANOFI-AVENTIS-2010SA007473

PATIENT
  Age: 79 Year
  Sex: Male

DRUGS (6)
  1. CLEXANE T [Suspect]
     Route: 058
     Dates: start: 20091201, end: 20100101
  2. RAMIPRIL [Concomitant]
     Route: 048
  3. LANTUS [Concomitant]
     Indication: DIABETES MELLITUS
     Dosage: DOSE:10 UNIT(S)
     Route: 058
  4. NOVONORM [Concomitant]
     Indication: DIABETES MELLITUS
     Route: 048
  5. METFORMIN HYDROCHLORIDE/PIOGLITAZONE HYDROCHLORIDE [Concomitant]
     Indication: DIABETES MELLITUS
     Dosage: DOSE:2 UNIT(S)
     Route: 048
  6. FLUTICASONE/SALMETEROL [Concomitant]
     Indication: DRUG USE FOR UNKNOWN INDICATION
     Dosage: DOSE:1 UNIT(S)
     Route: 055

REACTIONS (2)
  - ANAEMIA [None]
  - GASTRIC ULCER HAEMORRHAGE [None]
